FAERS Safety Report 17416752 (Version 3)
Quarter: 2020Q2

REPORT INFORMATION
  Report Type: Report from Study
  Country: US (occurrence: US)
  Receive Date: 20200214
  Receipt Date: 20200403
  Transmission Date: 20200713
  Serious: No
  Sender: FDA-Public Use
  Company Number: NVSC2020US035752

PATIENT
  Age: 84 Year
  Sex: Male

DRUGS (1)
  1. BEOVU [Suspect]
     Active Substance: BROLUCIZUMAB-DBLL
     Indication: NEOVASCULAR AGE-RELATED MACULAR DEGENERATION
     Dosage: 6 MG
     Route: 047
     Dates: start: 20200206

REACTIONS (2)
  - Vision blurred [Unknown]
  - Eye swelling [Unknown]

NARRATIVE: CASE EVENT DATE: 20200206
